FAERS Safety Report 24992821 (Version 1)
Quarter: 2025Q1

REPORT INFORMATION
  Report Type: Report from Study
  Country: FR (occurrence: FR)
  Receive Date: 20250221
  Receipt Date: 20250221
  Transmission Date: 20250409
  Serious: Yes (Death, Hospitalization)
  Sender: ABBVIE
  Company Number: FR-ABBVIE-6142988

PATIENT
  Age: 76 Year
  Sex: Male

DRUGS (1)
  1. FOSCARBIDOPA\FOSLEVODOPA [Suspect]
     Active Substance: FOSCARBIDOPA\FOSLEVODOPA
     Indication: Product used for unknown indication
     Route: 058
     Dates: start: 20241216

REACTIONS (2)
  - Death [Fatal]
  - Seizure [Unknown]

NARRATIVE: CASE EVENT DATE: 20250216
